FAERS Safety Report 13650524 (Version 5)
Quarter: 2017Q4

REPORT INFORMATION
  Report Type: Spontaneous
  Country: US (occurrence: US)
  Receive Date: 20170614
  Receipt Date: 20171129
  Transmission Date: 20180320
  Serious: No
  Sender: FDA-Public Use
  Company Number: US-BIOGEN-2017BI00413923

PATIENT
  Sex: Female
  Weight: 77.18 kg

DRUGS (5)
  1. AVONEX [Suspect]
     Active Substance: INTERFERON BETA-1A
     Indication: MULTIPLE SCLEROSIS
     Route: 030
  2. AVONEX [Suspect]
     Active Substance: INTERFERON BETA-1A
     Route: 030
  3. ALENDRONATE SODIUM. [Concomitant]
     Active Substance: ALENDRONATE SODIUM
     Indication: PRODUCT USED FOR UNKNOWN INDICATION
  4. AMPYRA [Concomitant]
     Active Substance: DALFAMPRIDINE
     Indication: GAIT DISTURBANCE
     Route: 030
  5. LEVOTHYROXINE SODIUM. [Concomitant]
     Active Substance: LEVOTHYROXINE SODIUM
     Indication: PRODUCT USED FOR UNKNOWN INDICATION

REACTIONS (5)
  - Insomnia [Not Recovered/Not Resolved]
  - Fatigue [Unknown]
  - Muscle spasms [Not Recovered/Not Resolved]
  - Feeling hot [Unknown]
  - Chills [Unknown]
